FAERS Safety Report 8003445-6 (Version None)
Quarter: 2011Q4

REPORT INFORMATION
  Report Type: 
  Country: None (occurrence: None)
  Receive Date: 20111222
  Receipt Date: 20111222
  Transmission Date: 20120403
  Serious: Yes (Other)
  Sender: FDA-Public Use
  Company Number: None

PATIENT
  Sex: Male
  Weight: 59.42 kg

DRUGS (1)
  1. TEETHING TABLETS [Suspect]
     Indication: TEETHING
     Dosage: 3 TABLETS
     Route: 048
     Dates: start: 20111219, end: 20111220

REACTIONS (1)
  - TOXICITY TO VARIOUS AGENTS [None]
